FAERS Safety Report 8446301-1 (Version None)
Quarter: 2012Q2

REPORT INFORMATION
  Report Type: 
  Country: None (occurrence: None)
  Receive Date: 20120618
  Receipt Date: 20120608
  Transmission Date: 20120825
  Serious: No
  Sender: FDA-Public Use
  Company Number: US-BAYER-2012-058654

PATIENT
  Age: 2 Year
  Sex: Male
  Weight: 18 kg

DRUGS (1)
  1. NAPROXEN (ALEVE) [Suspect]
     Dosage: 1 DF, ONCE
     Route: 048
     Dates: start: 20120608, end: 20120608

REACTIONS (1)
  - VOMITING [None]
